FAERS Safety Report 14033522 (Version 2)
Quarter: 2018Q1

REPORT INFORMATION
  Report Type: Spontaneous
  Country: US (occurrence: US)
  Receive Date: 20171003
  Receipt Date: 20180104
  Transmission Date: 20180508
  Serious: Yes (Other)
  Sender: FDA-Public Use
  Company Number: US-BTG INTERNATIONAL LTD-2017BTG01372

PATIENT
  Age: 38 Year
  Sex: Male

DRUGS (5)
  1. CROFAB [Suspect]
     Active Substance: CROTALIDAE POLYVALENT IMMUNE FAB (OVINE)
     Indication: SNAKE BITE
     Dosage: 5 VIALS, SINGLE
     Dates: start: 20170921
  2. CROFAB [Suspect]
     Active Substance: CROTALIDAE POLYVALENT IMMUNE FAB (OVINE)
     Dosage: 5 VIALS, SINGLE
     Dates: start: 20170922
  3. CROFAB [Suspect]
     Active Substance: CROTALIDAE POLYVALENT IMMUNE FAB (OVINE)
     Dosage: 2 VIALS, SINGLE
     Dates: start: 20170923
  4. CROFAB [Suspect]
     Active Substance: CROTALIDAE POLYVALENT IMMUNE FAB (OVINE)
     Dosage: 2 VIALS, SINGLE
     Dates: start: 20170923
  5. CROFAB [Suspect]
     Active Substance: CROTALIDAE POLYVALENT IMMUNE FAB (OVINE)
     Dosage: 2 VIALS, SINGLE
     Dates: start: 20170923

REACTIONS (5)
  - Peripheral swelling [Not Recovered/Not Resolved]
  - Drug ineffective [Unknown]
  - Erythema [Not Recovered/Not Resolved]
  - Pain [Unknown]
  - Hypersensitivity [Recovering/Resolving]

NARRATIVE: CASE EVENT DATE: 20170921
